FAERS Safety Report 21019025 (Version 1)
Quarter: 2022Q2

REPORT INFORMATION
  Report Type: Report from Study
  Country: CA (occurrence: CA)
  Receive Date: 20220628
  Receipt Date: 20220628
  Transmission Date: 20220721
  Serious: Yes (Other)
  Sender: FDA-Public Use
  Company Number: CA-HLS-202201182

PATIENT
  Sex: Female

DRUGS (2)
  1. CLOZARIL [Suspect]
     Active Substance: CLOZAPINE
     Indication: Product used for unknown indication
     Route: 048
     Dates: start: 20170122
  2. CISPLATIN [Concomitant]
     Active Substance: CISPLATIN
     Dosage: UNKNOWN
     Route: 065

REACTIONS (1)
  - Neoplasm malignant [Unknown]
